FAERS Safety Report 4787294-8 (Version None)
Quarter: 2005Q3

REPORT INFORMATION
  Report Type: 
  Country: None (occurrence: None)
  Receive Date: 20050926
  Receipt Date: 20050613
  Transmission Date: 20060218
  Serious: No
  Sender: FDA-Public Use
  Company Number: 215348

PATIENT
  Age: 52 Year
  Sex: Male

DRUGS (5)
  1. AVASTIN [Suspect]
     Indication: COLON CANCER METASTATIC
     Dosage: 7.5 MG/KG, Q2W
     Dates: start: 20040801
  2. IRINOTECAN HCL [Concomitant]
  3. 5-FU (FLOUROURACIL) [Concomitant]
  4. LEUCOVORIN CALCIUM [Concomitant]
  5. CETUXIMAB (CETUXIMAB) [Concomitant]

REACTIONS (1)
  - URETHRAL OBSTRUCTION [None]
